FAERS Safety Report 6155557-X (Version None)
Quarter: 2009Q2

REPORT INFORMATION
  Report Type: 
  Country: None (occurrence: None)
  Receive Date: 20090415
  Receipt Date: 20090407
  Transmission Date: 20091009
  Serious: Yes (Other)
  Sender: FDA-Public Use
  Company Number: TN-AVENTIS-200820521GDDC

PATIENT
  Age: 14 Year
  Sex: Male
  Weight: 44 kg

DRUGS (3)
  1. DOCETAXEL [Suspect]
     Route: 042
     Dates: start: 20081104, end: 20081104
  2. FLUOROURACIL [Suspect]
     Route: 042
     Dates: start: 20081004, end: 20081005
  3. CISPLATIN [Suspect]
     Route: 042
     Dates: start: 20081104, end: 20081104

REACTIONS (1)
  - MALLORY-WEISS SYNDROME [None]
